FAERS Safety Report 7742950 (Version 9)
Quarter: 2013Q1

REPORT INFORMATION
  Report Type: Report from Study
  Country: IE (occurrence: IE)
  Receive Date: 20101229
  Receipt Date: 20130218
  Transmission Date: 20140127
  Serious: Yes (Hospitalization)
  Sender: FDA-Public Use
  Company Number: IE-BRISTOL-MYERS SQUIBB COMPANY-15461924

PATIENT
  Age: 64 Year
  Sex: Male
  Weight: 76 kg

DRUGS (9)
  1. CETUXIMAB [Suspect]
     Indication: NON-SMALL CELL LUNG CANCER
     Dosage: STRENGTH:5MG/ML?RECENT DOSE(3RD):14DEC10?ONGOING
     Route: 042
     Dates: start: 20101130, end: 20101214
  2. CISPLATIN FOR INJ [Suspect]
     Indication: NON-SMALL CELL LUNG CANCER
     Route: 042
     Dates: start: 20101130, end: 20101130
  3. CILENGITIDE [Suspect]
     Indication: NON-SMALL CELL LUNG CANCER
     Dosage: RECENT DOSE(3RD):14DEC10
     Route: 042
     Dates: start: 20101130, end: 20101214
  4. GEMCITABINE [Suspect]
     Indication: NON-SMALL CELL LUNG CANCER
     Dosage: DAY 1 AND DAY 8 OF EACH 3WK CYCLE; TEMP DISCONTINUED ON 07DEC2010
     Route: 042
     Dates: start: 20101130, end: 20101130
  5. SENNA [Concomitant]
     Dosage: 1DF=2 TABS 2 IN 1 D
     Dates: start: 20101101
  6. LACTULOSE [Concomitant]
     Dates: start: 20101101
  7. OLMESARTAN MEDOXOMIL [Concomitant]
     Dosage: OMESAR
     Dates: start: 2008
  8. ZANIDIP [Concomitant]
     Dates: start: 2008
  9. ASPIRIN [Concomitant]
     Dates: start: 2008

REACTIONS (2)
  - Pulmonary thrombosis [Not Recovered/Not Resolved]
  - Pulmonary embolism [Not Recovered/Not Resolved]
